FAERS Safety Report 24086230 (Version 1)
Quarter: 2024Q3

REPORT INFORMATION
  Report Type: Report from Study
  Country: MX (occurrence: BR)
  Receive Date: 20240712
  Receipt Date: 20240712
  Transmission Date: 20241017
  Serious: Yes (Other)
  Sender: ELI LILLY AND CO
  Company Number: MX-Merck Healthcare KGaA-2024036426

PATIENT
  Age: 58 Year
  Sex: Male

DRUGS (1)
  1. CETUXIMAB [Suspect]
     Active Substance: CETUXIMAB
     Indication: Colorectal cancer
     Dosage: 450 MG, 2/W
     Route: 042
     Dates: start: 20230703

REACTIONS (6)
  - Device related thrombosis [Not Recovered/Not Resolved]
  - Positron emission tomogram abnormal [Unknown]
  - Cushing^s syndrome [Unknown]
  - Vena cava thrombosis [Not Recovered/Not Resolved]
  - Dizziness [Not Recovered/Not Resolved]
  - Off label use [Unknown]

NARRATIVE: CASE EVENT DATE: 20240603
